FAERS Safety Report 14657619 (Version 1)
Quarter: 2018Q1

REPORT INFORMATION
  Report Type: Spontaneous
  Country: ZA (occurrence: ZA)
  Receive Date: 20180320
  Receipt Date: 20180320
  Transmission Date: 20180509
  Serious: Yes (Other)
  Sender: FDA-Public Use
  Company Number: PHHY2018ZA045570

PATIENT
  Sex: Female

DRUGS (2)
  1. RANIHEXAL [Suspect]
     Active Substance: RANITIDINE HYDROCHLORIDE
     Indication: GASTROINTESTINAL DISORDER
     Dosage: 150 MG, UNK
     Route: 048
     Dates: start: 201710
  2. ESTROFEM [Concomitant]
     Active Substance: ESTRADIOL CYPIONATE
     Indication: PRODUCT USED FOR UNKNOWN INDICATION
     Route: 065

REACTIONS (1)
  - Breast cancer [Unknown]
